FAERS Safety Report 15314692 (Version 1)
Quarter: 2018Q3

REPORT INFORMATION
  Report Type: Spontaneous
  Country: DE (occurrence: DE)
  Receive Date: 20180824
  Receipt Date: 20180824
  Transmission Date: 20181010
  Serious: Yes (Other)
  Sender: FDA-Public Use
  Company Number: DE-TEVA-2018-DE-947651

PATIENT
  Age: 41 Year
  Sex: Male
  Weight: 130 kg

DRUGS (1)
  1. COPAXONE [Suspect]
     Active Substance: GLATIRAMER ACETATE
     Indication: MULTIPLE SCLEROSIS
     Route: 058

REACTIONS (6)
  - Injection site pain [Unknown]
  - Injection site swelling [Unknown]
  - Embolia cutis medicamentosa [Unknown]
  - Injection site discolouration [Unknown]
  - Skin necrosis [Unknown]
  - Injection site warmth [Unknown]

NARRATIVE: CASE EVENT DATE: 20180723
